FAERS Safety Report 22253664 (Version 2)
Quarter: 2023Q2

REPORT INFORMATION
  Report Type: Report from Study
  Country: US (occurrence: US)
  Receive Date: 20230426
  Receipt Date: 20230427
  Transmission Date: 20230721
  Serious: No
  Sender: FDA-Public Use
  Company Number: US-002147023-NVSC2023US095026

PATIENT
  Sex: Male

DRUGS (1)
  1. TRIAMCINOLONE [Suspect]
     Active Substance: TRIAMCINOLONE
     Indication: Hidradenitis
     Dosage: UNK UNK, BID
     Route: 065

REACTIONS (2)
  - Pustular psoriasis [Unknown]
  - Treatment failure [Unknown]
